FAERS Safety Report 5950860-8 (Version None)
Quarter: 2008Q4

REPORT INFORMATION
  Report Type: 
  Country: None (occurrence: None)
  Receive Date: 20081112
  Receipt Date: 20081102
  Transmission Date: 20090506
  Serious: Yes (Death)
  Sender: FDA-Public Use
  Company Number: FR-GENENTECH-268629

PATIENT
  Sex: Female
  Weight: 42 kg

DRUGS (6)
  1. LUCENTIS [Suspect]
     Indication: MACULAR DEGENERATION
     Dosage: 1 DF, SINGLE
     Route: 031
     Dates: start: 20080801
  2. LUCENTIS [Suspect]
     Dosage: 1 DF, SINGLE
     Route: 031
     Dates: start: 20080908
  3. CORDARONE [Concomitant]
     Indication: DRUG USE FOR UNKNOWN INDICATION
     Dosage: UNK
     Dates: start: 20040101
  4. KARDEGIC [Concomitant]
     Indication: DRUG USE FOR UNKNOWN INDICATION
     Dosage: UNK
     Dates: start: 20040101
  5. LEVOTHYROX [Concomitant]
     Indication: DRUG USE FOR UNKNOWN INDICATION
  6. LEXOMIL [Concomitant]
     Indication: DRUG USE FOR UNKNOWN INDICATION

REACTIONS (1)
  - HAEMORRHAGIC STROKE [None]
